FAERS Safety Report 16868553 (Version 1)
Quarter: 2019Q4

REPORT INFORMATION
  Report Type: Spontaneous
  Country: US (occurrence: US)
  Receive Date: 20190930
  Receipt Date: 20190930
  Transmission Date: 20200122
  Serious: No
  Sender: FDA-Public Use
  Company Number: None

PATIENT
  Age: 82 Year
  Sex: Male
  Weight: 90 kg

DRUGS (10)
  1. GABAPENTIN. [Concomitant]
     Active Substance: GABAPENTIN
  2. CALCIUM/ZINC/D3/MAGNESIUM COMBINATION TABLET [Concomitant]
  3. GEMFIBROZIL. [Concomitant]
     Active Substance: GEMFIBROZIL
  4. CELEBREX [Concomitant]
     Active Substance: CELECOXIB
  5. NEXIUM [Concomitant]
     Active Substance: ESOMEPRAZOLE MAGNESIUM
  6. PROLIA [Suspect]
     Active Substance: DENOSUMAB
     Indication: OSTEOPOROSIS
     Dosage: ?          QUANTITY:1 INJECTION(S);OTHER FREQUENCY:ONCE EVERY 6 MONTH;?
     Route: 030
     Dates: start: 20181208, end: 20190701
  7. ELAVIL [Concomitant]
     Active Substance: AMITRIPTYLINE HYDROCHLORIDE
  8. LOPRESSOR [Concomitant]
     Active Substance: METOPROLOL TARTRATE
  9. ONE-A-DAY NOS [Concomitant]
     Active Substance: MINERALS\VITAMINS
  10. SYNTHROID [Concomitant]
     Active Substance: LEVOTHYROXINE SODIUM

REACTIONS (7)
  - Loss of consciousness [None]
  - Arthralgia [None]
  - Urticaria [None]
  - Pruritus [None]
  - Rhinorrhoea [None]
  - Pain in extremity [None]
  - Back pain [None]

NARRATIVE: CASE EVENT DATE: 20190701
